FAERS Safety Report 4268786-7 (Version None)
Quarter: 2004Q1

REPORT INFORMATION
  Report Type: 
  Country: None (occurrence: None)
  Receive Date: 20040112
  Receipt Date: 20040112
  Transmission Date: 20041129
  Serious: Yes (Life-Threatening, Hospitalization)
  Sender: FDA-Public Use
  Company Number: None

PATIENT
  Age: 42 Year
  Sex: Male

DRUGS (1)
  1. LEFLUNOMIDE [Suspect]
     Indication: RHEUMATOID ARTHRITIS
     Dosage: 20 MG DAILY ORAL
     Route: 048
     Dates: start: 20040101, end: 20040101

REACTIONS (8)
  - ARTHRALGIA [None]
  - CELLULITIS [None]
  - CHILLS [None]
  - ERYTHEMA [None]
  - ESCHAR [None]
  - MYALGIA [None]
  - NECROTISING FASCIITIS [None]
  - PAIN IN EXTREMITY [None]
